FAERS Safety Report 4818927-5 (Version None)
Quarter: 2005Q4

REPORT INFORMATION
  Report Type: 
  Country: None (occurrence: None)
  Receive Date: 20051102
  Receipt Date: 20051102
  Transmission Date: 20060501
  Serious: Yes (Hospitalization, Other)
  Sender: FDA-Public Use
  Company Number: None

PATIENT
  Sex: Male
  Weight: 104.1 kg

DRUGS (4)
  1. CISPLATIN [Suspect]
     Indication: NASOPHARYNGEAL CANCER
     Dosage: SEE IMAGE
     Route: 042
     Dates: start: 20051013, end: 20051013
  2. RADIATION THERAPY [Suspect]
     Dosage: SEE IMAGE
     Dates: start: 20051013
  3. CISPLATIN [Suspect]
     Dosage: SEE IMAGE
     Dates: start: 20051013, end: 20051013
  4. FLUOROURACIL [Suspect]
     Dosage: SEE IMAGE
     Dates: start: 20051013, end: 20051017

REACTIONS (3)
  - DEHYDRATION [None]
  - ODYNOPHAGIA [None]
  - PYREXIA [None]
